FAERS Safety Report 23278242 (Version 4)
Quarter: 2024Q2

REPORT INFORMATION
  Report Type: Report from Study
  Country: US (occurrence: US)
  Receive Date: 20231208
  Receipt Date: 20240618
  Transmission Date: 20240716
  Serious: Yes (Hospitalization, Other)
  Sender: FDA-Public Use
  Company Number: US-ABBVIE-5499362

PATIENT
  Age: 66 Year
  Sex: Male
  Weight: 90.718 kg

DRUGS (19)
  1. HUMIRA [Suspect]
     Active Substance: ADALIMUMAB
     Indication: Rheumatoid arthritis
     Dosage: FORM STRENGTH: 40 MILLIGRAM, CITRATE FREE
     Route: 058
     Dates: start: 20211111
  2. HUMIRA [Suspect]
     Active Substance: ADALIMUMAB
     Dosage: FORM STRENGTH: 40 MG, CITRATE FREE
     Route: 058
  3. TAMSULOSIN [Concomitant]
     Active Substance: TAMSULOSIN
     Indication: Prostatitis
     Dosage: 0.4 MG
     Route: 048
     Dates: start: 20191122
  4. VOLTAREN [Concomitant]
     Active Substance: DICLOFENAC SODIUM
     Indication: Pain
     Dosage: TIME INTERVAL: 0.33333333 DAYS
     Route: 061
     Dates: start: 20191122
  5. ENTRESTO [Concomitant]
     Active Substance: SACUBITRIL\VALSARTAN
     Indication: Cardiomyopathy
     Route: 065
     Dates: start: 20230701
  6. ESOMEPRAZOLE MAGNESIUM [Concomitant]
     Active Substance: ESOMEPRAZOLE MAGNESIUM
     Indication: Gastrooesophageal reflux disease
     Route: 065
     Dates: start: 20191122
  7. HYDROXYCHLOROQUINE [Concomitant]
     Active Substance: HYDROXYCHLOROQUINE
     Indication: Rheumatoid arthritis
     Route: 048
     Dates: start: 20191122
  8. FLOVENT HFA [Concomitant]
     Active Substance: FLUTICASONE PROPIONATE
     Indication: Chronic obstructive pulmonary disease
     Dosage: 1 PUFF TWICE PER DAY             ?220MCG AEROSOL
     Route: 065
     Dates: start: 20191122
  9. CARVEDILOL [Concomitant]
     Active Substance: CARVEDILOL
     Indication: Hypotension
     Route: 048
     Dates: start: 20191122
  10. MIRTAZAPINE [Concomitant]
     Active Substance: MIRTAZAPINE
     Indication: Anxiety
     Route: 048
     Dates: start: 20191122
  11. ROSUVASTATIN [Concomitant]
     Active Substance: ROSUVASTATIN
     Indication: Cardiomyopathy
     Route: 065
     Dates: start: 20220329
  12. GABAPENTIN [Concomitant]
     Active Substance: GABAPENTIN
     Indication: Dyspnoea paroxysmal nocturnal
     Dosage: TIME INTERVAL: 0.33333333 DAYS
     Route: 048
     Dates: start: 20191122
  13. ASPIRIN [Concomitant]
     Active Substance: ASPIRIN
     Indication: Anticoagulant therapy
     Route: 065
     Dates: start: 20191122
  14. HYDROCHLOROTHIAZIDE [Concomitant]
     Active Substance: HYDROCHLOROTHIAZIDE
     Indication: Chronic kidney disease
     Route: 065
     Dates: start: 20211028
  15. POTASSIUM CITRATE [Concomitant]
     Active Substance: POTASSIUM CITRATE
     Indication: Nephrolithiasis
     Route: 065
     Dates: start: 20211028
  16. TYLENOL [Concomitant]
     Active Substance: ACETAMINOPHEN
     Indication: Pain
     Dosage: 8HR EXTEND RELEASE
     Route: 065
     Dates: start: 20220215
  17. FERROUS SULFATE [Concomitant]
     Active Substance: FERROUS SULFATE
     Indication: Anaemia prophylaxis
     Route: 065
  18. MAGNESIUM [Concomitant]
     Active Substance: MAGNESIUM
     Indication: Dyspepsia
     Route: 065
  19. CALCIUM [Concomitant]
     Active Substance: CALCIUM
     Indication: Bone disorder
     Route: 065

REACTIONS (9)
  - Hypoglycaemia [Recovering/Resolving]
  - Rheumatoid arthritis [Unknown]
  - Loss of consciousness [Unknown]
  - Nephrolithiasis [Unknown]
  - Therapeutic response shortened [Unknown]
  - Pain in extremity [Unknown]
  - COVID-19 [Unknown]
  - Pancreatic neoplasm [Unknown]
  - Seizure [Unknown]

NARRATIVE: CASE EVENT DATE: 20230201
